FAERS Safety Report 4399487-2 (Version None)
Quarter: 2004Q3

REPORT INFORMATION
  Report Type: 
  Country: None (occurrence: None)
  Receive Date: 20040716
  Receipt Date: 20021028
  Transmission Date: 20050211
  Serious: Yes (Other)
  Sender: FDA-Public Use
  Company Number: PHBS2002ES13075

PATIENT
  Age: 41 Year
  Sex: Female

DRUGS (1)
  1. SANDIMMUNE [Suspect]
     Indication: PSORIASIS
     Dosage: 250 MG/D
     Route: 048
     Dates: end: 20010801

REACTIONS (5)
  - ATAXIA [None]
  - CEREBELLAR ATROPHY [None]
  - DYSARTHRIA [None]
  - NEUROTOXICITY [None]
  - PROGRESSIVE CEREBELLAR DEGENERATION [None]
